APPROVED DRUG PRODUCT: CLONIDINE HYDROCHLORIDE
Active Ingredient: CLONIDINE HYDROCHLORIDE
Strength: 1MG/10ML (0.1MG/ML)
Dosage Form/Route: INJECTABLE;INJECTION
Application: A091104 | Product #001
Applicant: AMERICAN REGENT INC
Approved: Oct 8, 2009 | RLD: No | RS: No | Type: DISCN